FAERS Safety Report 13360738 (Version 2)
Quarter: 2017Q3

REPORT INFORMATION
  Report Type: Spontaneous
  Country: US (occurrence: US)
  Receive Date: 20170322
  Receipt Date: 20170811
  Transmission Date: 20171127
  Serious: Yes (Hospitalization)
  Sender: FDA-Public Use
  Company Number: US-VIFOR (INTERNATIONAL) INC.-VIT-2017-02890

PATIENT
  Age: 74 Year
  Sex: Male
  Weight: 92.07 kg

DRUGS (23)
  1. NEURONTIN [Concomitant]
     Active Substance: GABAPENTIN
  2. ENTRESTO [Concomitant]
     Active Substance: SACUBITRIL\VALSARTAN
  3. TOUJEO [Concomitant]
     Active Substance: INSULIN GLARGINE
  4. FOLIC ACID. [Concomitant]
     Active Substance: FOLIC ACID
  5. NOVOLOG [Concomitant]
     Active Substance: INSULIN ASPART
  6. CARVEDILOL. [Concomitant]
     Active Substance: CARVEDILOL
  7. CYMBALTA [Concomitant]
     Active Substance: DULOXETINE HYDROCHLORIDE
  8. LEVOTHYROXINE SODIUM. [Concomitant]
     Active Substance: LEVOTHYROXINE SODIUM
  9. LIPITOR [Concomitant]
     Active Substance: ATORVASTATIN CALCIUM
  10. ASCORBIC ACID. [Concomitant]
     Active Substance: ASCORBIC ACID
  11. ASCORBIC ACID. [Concomitant]
     Active Substance: ASCORBIC ACID
  12. VOLTAREN [Concomitant]
     Active Substance: DICLOFENAC SODIUM
  13. ACETYLSALICYLIC ACID [Concomitant]
     Active Substance: ASPIRIN
  14. FERROUS SULFATE. [Concomitant]
     Active Substance: FERROUS SULFATE
  15. MURO 128 [Concomitant]
     Active Substance: SODIUM CHLORIDE
  16. OMEGA-3 ACIDS [Concomitant]
     Active Substance: OMEGA-3 FATTY ACIDS
  17. CYANOCOBALAMIN. [Concomitant]
     Active Substance: CYANOCOBALAMIN
  18. VELTASSA [Suspect]
     Active Substance: PATIROMER
     Indication: HYPERKALAEMIA
     Route: 048
     Dates: start: 20160528
  19. TIMOLOL MALEATE. [Concomitant]
     Active Substance: TIMOLOL MALEATE
  20. TORASEMIDE [Concomitant]
     Active Substance: TORSEMIDE
  21. KAYEXALATE [Concomitant]
     Active Substance: SODIUM POLYSTYRENE SULFONATE
  22. GLYCERYL TRINITRATE [Concomitant]
     Active Substance: NITROGLYCERIN
  23. XALATAN [Concomitant]
     Active Substance: LATANOPROST

REACTIONS (1)
  - Large intestinal haemorrhage [Not Recovered/Not Resolved]

NARRATIVE: CASE EVENT DATE: 20170313
